FAERS Safety Report 25495496 (Version 1)
Quarter: 2025Q2

REPORT INFORMATION
  Report Type: Spontaneous
  Country: NL (occurrence: NL)
  Receive Date: 20250630
  Receipt Date: 20250630
  Transmission Date: 20250717
  Serious: Yes (Other)
  Sender: MYLAN
  Company Number: None

PATIENT
  Age: 90 Year
  Sex: Female
  Weight: 53 kg

DRUGS (16)
  1. CITALOPRAM [Suspect]
     Active Substance: CITALOPRAM
     Indication: Depression
     Dosage: 1 DOSAGE FORM, QD (1 X PER DAY 1 TABLET)
     Dates: start: 20250317
  2. CITALOPRAM [Suspect]
     Active Substance: CITALOPRAM
     Dosage: 1 DOSAGE FORM, QD (1 X PER DAY 1 TABLET)
     Dates: start: 20250317
  3. CITALOPRAM [Suspect]
     Active Substance: CITALOPRAM
     Dosage: 1 DOSAGE FORM, QD (1 X PER DAY 1 TABLET)
     Route: 048
     Dates: start: 20250317
  4. CITALOPRAM [Suspect]
     Active Substance: CITALOPRAM
     Dosage: 1 DOSAGE FORM, QD (1 X PER DAY 1 TABLET)
     Route: 048
     Dates: start: 20250317
  5. CITALOPRAM [Suspect]
     Active Substance: CITALOPRAM
     Dosage: 1 DOSAGE FORM, QD (1 X PER DAY 1 TABLET)
     Dates: start: 20250326, end: 20250602
  6. CITALOPRAM [Suspect]
     Active Substance: CITALOPRAM
     Dosage: 1 DOSAGE FORM, QD (1 X PER DAY 1 TABLET)
     Dates: start: 20250326, end: 20250602
  7. CITALOPRAM [Suspect]
     Active Substance: CITALOPRAM
     Dosage: 1 DOSAGE FORM, QD (1 X PER DAY 1 TABLET)
     Route: 048
     Dates: start: 20250326, end: 20250602
  8. CITALOPRAM [Suspect]
     Active Substance: CITALOPRAM
     Dosage: 1 DOSAGE FORM, QD (1 X PER DAY 1 TABLET)
     Route: 048
     Dates: start: 20250326, end: 20250602
  9. FENTANYL [Concomitant]
     Active Substance: FENTANYL
     Indication: Fracture pain
     Dosage: 50 MICROGRAM, Q3D (CURRENTLY 50 MICROGRAMS ONCE EVERY THREE DAYS)
     Dates: start: 20250420
  10. FENTANYL [Concomitant]
     Active Substance: FENTANYL
     Dosage: 50 MICROGRAM, Q3D (CURRENTLY 50 MICROGRAMS ONCE EVERY THREE DAYS)
     Route: 062
     Dates: start: 20250420
  11. FENTANYL [Concomitant]
     Active Substance: FENTANYL
     Dosage: 50 MICROGRAM, Q3D (CURRENTLY 50 MICROGRAMS ONCE EVERY THREE DAYS)
     Route: 062
     Dates: start: 20250420
  12. FENTANYL [Concomitant]
     Active Substance: FENTANYL
     Dosage: 50 MICROGRAM, Q3D (CURRENTLY 50 MICROGRAMS ONCE EVERY THREE DAYS)
     Dates: start: 20250420
  13. OXYCODONE [Concomitant]
     Active Substance: OXYCODONE
     Indication: Pain
     Dosage: 5 DOSAGE FORM, QD (4 X DAILY IF NEEDED 1 TABLET  )
     Dates: start: 20250419
  14. OXYCODONE [Concomitant]
     Active Substance: OXYCODONE
     Dosage: 5 DOSAGE FORM, QD (4 X DAILY IF NEEDED 1 TABLET  )
     Route: 048
     Dates: start: 20250419
  15. OXYCODONE [Concomitant]
     Active Substance: OXYCODONE
     Dosage: 5 DOSAGE FORM, QD (4 X DAILY IF NEEDED 1 TABLET  )
     Route: 048
     Dates: start: 20250419
  16. OXYCODONE [Concomitant]
     Active Substance: OXYCODONE
     Dosage: 5 DOSAGE FORM, QD (4 X DAILY IF NEEDED 1 TABLET  )
     Dates: start: 20250419

REACTIONS (5)
  - Spinal fracture [Not Recovered/Not Resolved]
  - Delusion [Recovered/Resolved]
  - Abnormal behaviour [Recovered/Resolved]
  - Disorientation [Recovered/Resolved]
  - Aggression [Recovered/Resolved]
